FAERS Safety Report 4872795-4 (Version None)
Quarter: 2006Q1

REPORT INFORMATION
  Report Type: 
  Country: None (occurrence: None)
  Receive Date: 20060103
  Receipt Date: 20051223
  Transmission Date: 20060701
  Serious: Yes (Death)
  Sender: FDA-Public Use
  Company Number: 200511950GDS

PATIENT
  Age: 72 Year
  Sex: Female
  Weight: 65 kg

DRUGS (5)
  1. MOXIFLOXACIN HYDROCHLORIDE [Suspect]
     Indication: PNEUMONIA
     Dosage: 400 MG, TOTAL DAILY, INTRAVENOUS
     Route: 042
     Dates: start: 20050602
  2. KLACID [Concomitant]
  3. GLICLAZIDE [Concomitant]
  4. SIMVASTATIN [Concomitant]
  5. ATROVENT [Concomitant]

REACTIONS (17)
  - ANAPHYLACTIC REACTION [None]
  - AORTIC ARTERIOSCLEROSIS [None]
  - ARTERIOSCLEROSIS [None]
  - ATELECTASIS [None]
  - BRAIN DEATH [None]
  - CARDIAC ARREST [None]
  - CORONARY ARTERY OCCLUSION [None]
  - GASTRITIS HAEMORRHAGIC [None]
  - IATROGENIC INJURY [None]
  - ILIAC ARTERY OCCLUSION [None]
  - LARYNGEAL OEDEMA [None]
  - LUNG DISORDER [None]
  - PROCEDURAL COMPLICATION [None]
  - PYURIA [None]
  - RENAL DISORDER [None]
  - RIB FRACTURE [None]
  - SCAR [None]
